FAERS Safety Report 8151457-4 (Version None)
Quarter: 2012Q1

REPORT INFORMATION
  Report Type: 
  Country: None (occurrence: None)
  Receive Date: 20120220
  Receipt Date: 20120210
  Transmission Date: 20120608
  Serious: Yes (Hospitalization, Other)
  Sender: FDA-Public Use
  Company Number: US-ASTRAZENECA-2012SE09772

PATIENT
  Age: 428 Month
  Sex: Male
  Weight: 61.7 kg

DRUGS (4)
  1. ASCORBIC ACID [Concomitant]
     Route: 048
  2. NEXIUM [Suspect]
     Indication: OESOPHAGITIS
     Route: 048
     Dates: start: 20110701, end: 20120126
  3. ASCORBIC ACID [Concomitant]
     Route: 048
  4. NEXIUM [Suspect]
     Indication: TRISOMY 21
     Route: 048
     Dates: start: 20110701, end: 20120126

REACTIONS (10)
  - WEIGHT DECREASED [None]
  - PAIN [None]
  - SYNCOPE [None]
  - OFF LABEL USE [None]
  - CONVULSION [None]
  - NASOPHARYNGITIS [None]
  - DIARRHOEA [None]
  - LOSS OF CONSCIOUSNESS [None]
  - CONDITION AGGRAVATED [None]
  - LACTOSE INTOLERANCE [None]
